FAERS Safety Report 23090157 (Version 3)
Quarter: 2025Q1

REPORT INFORMATION
  Report Type: Report from Study
  Country: US (occurrence: US)
  Receive Date: 20231020
  Receipt Date: 20250312
  Transmission Date: 20250408
  Serious: No
  Sender: ROCHE
  Company Number: US-ROCHE-3165434

PATIENT
  Age: 67 Year
  Sex: Female
  Weight: 59.42 kg

DRUGS (20)
  1. RITUXAN [Suspect]
     Active Substance: RITUXIMAB
     Indication: Rheumatoid vasculitis
     Dosage: INFUSE 1000 MG INTRAVENOUSLY EVERY 2 WEEK(S) FOR 2 DOSES AS DIRECTED, ON DAY 0, DAY 14 THEN REPEAT C
     Route: 042
  2. RITUXAN [Suspect]
     Active Substance: RITUXIMAB
     Indication: Multiple sclerosis
  3. RITUXAN [Suspect]
     Active Substance: RITUXIMAB
     Indication: Rheumatoid arthritis
  4. ACTEMRA [Concomitant]
     Active Substance: TOCILIZUMAB
  5. VITAMIN D3 [Concomitant]
     Active Substance: CHOLECALCIFEROL
  6. LANTUS [Concomitant]
     Active Substance: INSULIN GLARGINE
  7. JARDIANCE [Concomitant]
     Active Substance: EMPAGLIFLOZIN
  8. CYCLOBENZAPRINE [Concomitant]
     Active Substance: CYCLOBENZAPRINE
  9. HYDROXYCHLOROQUINE [Concomitant]
     Active Substance: HYDROXYCHLOROQUINE
  10. HUMALOG [Concomitant]
     Active Substance: INSULIN LISPRO
  11. ZYRTEC [Concomitant]
     Active Substance: CETIRIZINE HYDROCHLORIDE
  12. METHOTREXATE [Concomitant]
     Active Substance: METHOTREXATE
  13. RINVOQ [Concomitant]
     Active Substance: UPADACITINIB
  14. TYLENOL [Concomitant]
     Active Substance: ACETAMINOPHEN
  15. ORENCIA [Concomitant]
     Active Substance: ABATACEPT
  16. HUMIRA [Concomitant]
     Active Substance: ADALIMUMAB
  17. XELJANZ [Concomitant]
     Active Substance: TOFACITINIB CITRATE
  18. CIMZIA [Concomitant]
     Active Substance: CERTOLIZUMAB PEGOL
  19. PREVNAR 13 [Concomitant]
     Active Substance: STREPTOCOCCUS PNEUMONIAE TYPE 1 CAPSULAR POLYSACCHARIDE DIPHTHERIA CRM197 PROTEIN CONJUGATE ANTIGEN\
  20. PNEUMOVAX 23 [Concomitant]
     Active Substance: PNEUMOCOCCAL VACCINE, POLYVALENT 23

REACTIONS (8)
  - Product prescribing error [Unknown]
  - Alopecia [Unknown]
  - Off label use [Unknown]
  - Stress [Unknown]
  - Decreased appetite [Unknown]
  - Anxiety [Unknown]
  - Hepatic enzyme increased [Unknown]
  - Sinusitis [Unknown]

NARRATIVE: CASE EVENT DATE: 20230820
